FAERS Safety Report 7808003-1 (Version None)
Quarter: 2011Q4

REPORT INFORMATION
  Report Type: 
  Country: None (occurrence: None)
  Receive Date: 20111011
  Receipt Date: 20111011
  Transmission Date: 20120403
  Serious: Yes (Death)
  Sender: FDA-Public Use
  Company Number: None

PATIENT
  Sex: Female
  Weight: 130.63 kg

DRUGS (12)
  1. HUMOLOG INS [Concomitant]
  2. ALDOMET [Suspect]
     Indication: HYPERTENSION
     Dosage: 500 MG
     Route: 048
     Dates: start: 20091201, end: 20100921
  3. EFFEXOR [Concomitant]
     Route: 048
  4. LASIX [Concomitant]
     Route: 042
  5. VASOTEC [Concomitant]
  6. VITAMIN AND MINERAL PRENATAL SUPPLEMENT W/ FOLIC ACID CAP [Concomitant]
     Route: 048
  7. HEPARIN [Concomitant]
  8. MOTRIN [Concomitant]
  9. ANCEF [Concomitant]
  10. FOLIC ACID [Concomitant]
     Route: 048
  11. VITAMIN B-12 [Concomitant]
  12. PERCOCET [Concomitant]
     Route: 048

REACTIONS (18)
  - HYPERTENSION [None]
  - DYSPNOEA [None]
  - CHEST PAIN [None]
  - BLOOD LACTATE DEHYDROGENASE INCREASED [None]
  - VITAMIN B12 DEFICIENCY [None]
  - DIZZINESS [None]
  - BRADYCARDIA [None]
  - HEPATOMEGALY [None]
  - PRE-ECLAMPSIA [None]
  - CAESAREAN SECTION [None]
  - VAGINAL HAEMORRHAGE [None]
  - ANAEMIA HAEMOLYTIC AUTOIMMUNE [None]
  - SPLENOMEGALY [None]
  - CARDIOMEGALY [None]
  - MATERNAL EXPOSURE DURING PREGNANCY [None]
  - CARDIAC ARREST [None]
  - PULMONARY CONGESTION [None]
  - PULMONARY OEDEMA [None]
